FAERS Safety Report 6858889-2 (Version None)
Quarter: 2010Q3

REPORT INFORMATION
  Report Type: 
  Country: None (occurrence: None)
  Receive Date: 20100719
  Receipt Date: 20080216
  Transmission Date: 20110219
  Serious: Yes (Other)
  Sender: FDA-Public Use
  Company Number: US-PFIZER INC-2008016623

PATIENT
  Sex: Female
  Weight: 62.272 kg

DRUGS (3)
  1. CHANTIX [Suspect]
     Indication: SMOKING CESSATION THERAPY
     Dates: start: 20071101, end: 20080210
  2. PARA-SELTZER [Concomitant]
  3. VITAMIN B-12 [Concomitant]

REACTIONS (3)
  - DEPRESSED MOOD [None]
  - FEAR [None]
  - SUICIDAL IDEATION [None]
